FAERS Safety Report 8018907-5 (Version None)
Quarter: 2012Q1

REPORT INFORMATION
  Report Type: 
  Country: None (occurrence: None)
  Receive Date: 20120103
  Receipt Date: 20111230
  Transmission Date: 20120608
  Serious: Yes (Other)
  Sender: FDA-Public Use
  Company Number: CN-PFIZER INC-2011310873

PATIENT
  Age: 35 Year
  Sex: Male

DRUGS (4)
  1. CEFOPERAZONE SODIUM [Suspect]
     Indication: ACINETOBACTER INFECTION
  2. DIFLUCAN [Suspect]
     Indication: CANDIDIASIS
  3. DIFLUCAN [Suspect]
     Indication: ACINETOBACTER INFECTION
  4. CEFOPERAZONE SODIUM [Suspect]
     Indication: CANDIDIASIS

REACTIONS (2)
  - PANCYTOPENIA [None]
  - DERMATITIS BULLOUS [None]
